FAERS Safety Report 19845346 (Version 2)
Quarter: 2022Q4

REPORT INFORMATION
  Report Type: Spontaneous
  Country: DE (occurrence: DE)
  Receive Date: 20210917
  Receipt Date: 20221206
  Transmission Date: 20230113
  Serious: Yes (Hospitalization, Other)
  Sender: FDA-Public Use
  Company Number: None

PATIENT
  Age: 88 Year
  Sex: Female

DRUGS (10)
  1. SPIRONOLACTONE [Suspect]
     Active Substance: SPIRONOLACTONE
     Indication: Product used for unknown indication
     Dosage: 50 MG
     Route: 048
  2. LATANOPROST [Concomitant]
     Active Substance: LATANOPROST
     Dosage: 0-0-0-1
     Route: 031
  3. BISOPROLOL [Concomitant]
     Active Substance: BISOPROLOL
     Dosage: 5 MG, 1-0-0-0
     Route: 048
  4. MIANSERIN [Concomitant]
     Active Substance: MIANSERIN
     Route: 048
  5. DorzoComp-Vision [Concomitant]
     Dosage: STRENGTH: 20 MG / ML + 5 MG / ML, 5/2, 1-0-1-0
     Route: 031
  6. MELPERONE [Concomitant]
     Active Substance: MELPERONE
     Dosage: 25MG / 5ML SOLUTION, AS NEEDED
     Route: 048
  7. ZOLPIDEM [Concomitant]
     Active Substance: ZOLPIDEM TARTRATE
     Dosage: 10 MG, 0-0-0-0.5
     Route: 048
  8. LEVOTHYROXINE SODIUM [Concomitant]
     Active Substance: LEVOTHYROXINE SODIUM
     Dosage: 100 MCG, 0.75-0-0-0
     Route: 048
  9. CANDESARTAN [Concomitant]
     Active Substance: CANDESARTAN
     Dosage: 8 MG
     Route: 048
  10. Duloxetine 1A Pharma [Concomitant]
     Dosage: 30 MG, 1-0-0-0
     Route: 048

REACTIONS (6)
  - Product monitoring error [Unknown]
  - Psychomotor retardation [Unknown]
  - Abdominal pain [Unknown]
  - Nausea [Unknown]
  - Hyponatraemia [Unknown]
  - Hyperkalaemia [Unknown]
